FAERS Safety Report 4454309-6 (Version None)
Quarter: 2004Q3

REPORT INFORMATION
  Report Type: 
  Country: None (occurrence: None)
  Receive Date: 20040916
  Receipt Date: 20040916
  Transmission Date: 20050211
  Serious: Yes (Hospitalization)
  Sender: FDA-Public Use
  Company Number: None

PATIENT
  Age: 55 Year
  Sex: Male
  Weight: 109 kg

DRUGS (2)
  1. ANAGRELIDE  0.5 MG [Suspect]
     Dosage: 0.5 MG PO TID
     Route: 048
     Dates: start: 20040401, end: 20040408
  2. ANAGRELIDE  1 MG [Suspect]
     Dosage: 1 MG TID
     Dates: start: 20040408

REACTIONS (4)
  - CARDIAC FAILURE CONGESTIVE [None]
  - DYSPNOEA [None]
  - OEDEMA PERIPHERAL [None]
  - WEIGHT INCREASED [None]
